FAERS Safety Report 8181498-2 (Version None)
Quarter: 2012Q1

REPORT INFORMATION
  Report Type: 
  Country: None (occurrence: None)
  Receive Date: 20120302
  Receipt Date: 20120228
  Transmission Date: 20120608
  Serious: Yes (Hospitalization, Congenital Anomaly, Other)
  Sender: FDA-Public Use
  Company Number: NL-PFIZER INC-2012053182

PATIENT
  Sex: Female

DRUGS (3)
  1. LEVOTHYROXINE SODIUM [Suspect]
     Dosage: UNK
     Route: 064
  2. SERTRALINE HYDROCHLORIDE [Suspect]
     Dosage: UNK
     Route: 064
  3. OMEPRAZOLE [Suspect]
     Dosage: UNK
     Route: 064

REACTIONS (4)
  - DYSMORPHISM [None]
  - MATERNAL EXPOSURE TIMING UNSPECIFIED [None]
  - MATERNAL DRUGS AFFECTING FOETUS [None]
  - APGAR SCORE LOW [None]
